FAERS Safety Report 10222975 (Version 5)
Quarter: 2015Q3

REPORT INFORMATION
  Report Type: Report from Study
  Country: AT (occurrence: AT)
  Receive Date: 20140607
  Receipt Date: 20150730
  Transmission Date: 20151125
  Serious: Yes (Other)
  Sender: FDA-Public Use
  Company Number: PHHY2013AT135009

PATIENT
  Sex: Male
  Weight: 80 kg

DRUGS (5)
  1. STI571 [Suspect]
     Active Substance: IMATINIB MESYLATE
     Dosage: 600 MG, UNK
     Route: 048
     Dates: start: 20051215, end: 20060312
  2. STI571 [Suspect]
     Active Substance: IMATINIB MESYLATE
     Dosage: 800 MG, UNK
     Route: 048
     Dates: start: 20060313, end: 20070325
  3. STI571 [Suspect]
     Active Substance: IMATINIB MESYLATE
     Dosage: 600 MG, UNK
     Route: 048
     Dates: start: 20070326, end: 20100906
  4. STI571 [Suspect]
     Active Substance: IMATINIB MESYLATE
     Dosage: 400 MG, DAILY
     Route: 048
     Dates: start: 20100907
  5. STI571 [Suspect]
     Active Substance: IMATINIB MESYLATE
     Indication: CHRONIC MYELOID LEUKAEMIA
     Dosage: 400 MG, UNK
     Route: 048
     Dates: start: 20030616, end: 20051214

REACTIONS (5)
  - Abdominal pain [Unknown]
  - Myalgia [Unknown]
  - Musculoskeletal disorder [Unknown]
  - Tetany [Not Recovered/Not Resolved]
  - Muscle spasms [Not Recovered/Not Resolved]

NARRATIVE: CASE EVENT DATE: 20041215
